FAERS Safety Report 17075074 (Version 2)
Quarter: 2019Q4

REPORT INFORMATION
  Report Type: Report from Study
  Country: US (occurrence: US)
  Receive Date: 20191126
  Receipt Date: 20191218
  Transmission Date: 20200122
  Serious: Yes (Death, Life-Threatening, Hospitalization, Other)
  Sender: FDA-Public Use
  Company Number: NVSC2019US044188

PATIENT
  Age: 75 Year
  Sex: Male
  Weight: 77.4 kg

DRUGS (3)
  1. KYMRIAH [Suspect]
     Active Substance: TISAGENLECLEUCEL
     Indication: DIFFUSE LARGE B-CELL LYMPHOMA
     Dosage: 1.9 X 10^8 FLAT DOSE
     Route: 041
     Dates: start: 20191111, end: 20191111
  2. CYCLOPHOSPHAMIDE. [Concomitant]
     Active Substance: CYCLOPHOSPHAMIDE
     Indication: PRODUCT USED FOR UNKNOWN INDICATION
     Dosage: UNK
     Route: 065
     Dates: start: 20191107
  3. FLUDARABINE [Concomitant]
     Active Substance: FLUDARABINE PHOSPHATE
     Indication: PRODUCT USED FOR UNKNOWN INDICATION
     Dosage: UNK
     Route: 065
     Dates: start: 20191107

REACTIONS (14)
  - Malignant neoplasm progression [Unknown]
  - Cytokine release syndrome [Recovered/Resolved]
  - Acute kidney injury [Unknown]
  - Blood creatinine increased [Unknown]
  - Death [Fatal]
  - Hypotension [Recovered/Resolved]
  - Chills [Unknown]
  - Enterococcal infection [Unknown]
  - Pyrexia [Unknown]
  - Stress cardiomyopathy [Unknown]
  - Sepsis [Unknown]
  - Diffuse large B-cell lymphoma [Unknown]
  - Urine output decreased [Unknown]
  - Chest pain [Unknown]

NARRATIVE: CASE EVENT DATE: 20191115
